FAERS Safety Report 13347338 (Version 2)
Quarter: 2017Q2

REPORT INFORMATION
  Report Type: Spontaneous
  Country: IT (occurrence: IT)
  Receive Date: 20170317
  Receipt Date: 20170407
  Transmission Date: 20170830
  Serious: Yes (Other)
  Sender: FDA-Public Use
  Company Number: IT-MYLANLABS-2017M1016067

PATIENT

DRUGS (1)
  1. TACROLIMUS. [Suspect]
     Active Substance: TACROLIMUS
     Indication: DERMATITIS BULLOUS
     Dosage: UNK

REACTIONS (3)
  - Pemphigoid [Recovered/Resolved]
  - Immune system disorder [Unknown]
  - Off label use [Unknown]
